FAERS Safety Report 14617177 (Version 1)
Quarter: 2018Q1

REPORT INFORMATION
  Report Type: Spontaneous
  Country: JP (occurrence: JP)
  Receive Date: 20180309
  Receipt Date: 20180309
  Transmission Date: 20180509
  Serious: Yes (Death)
  Sender: FDA-Public Use
  Company Number: JP-009507513-1803JPN003157

PATIENT
  Age: 62 Year
  Sex: Male
  Weight: 50 kg

DRUGS (1)
  1. CASPOFUNGIN ACETATE. [Suspect]
     Active Substance: CASPOFUNGIN ACETATE
     Indication: BRONCHOPULMONARY ASPERGILLOSIS
     Dosage: 70 MG, UNK
     Route: 042

REACTIONS (1)
  - Drug ineffective [Fatal]
